FAERS Safety Report 5131601-3 (Version None)
Quarter: 2006Q4

REPORT INFORMATION
  Report Type: 
  Country: None (occurrence: None)
  Receive Date: 20061020
  Receipt Date: 20061012
  Transmission Date: 20070319
  Serious: Yes (Disabling)
  Sender: FDA-Public Use
  Company Number: BE-ABBOTT-06P-013-0346891-00

PATIENT
  Sex: Male

DRUGS (3)
  1. HUMIRA [Suspect]
     Indication: RHEUMATOID ARTHRITIS
     Route: 058
     Dates: start: 20040719
  2. METHOTREXATE SODIUM [Suspect]
     Indication: DRUG USE FOR UNKNOWN INDICATION
     Dates: end: 20060529
  3. AMLODIPINE BEXAL [Concomitant]
     Indication: DRUG USE FOR UNKNOWN INDICATION
     Route: 048

REACTIONS (1)
  - INTERSTITIAL LUNG DISEASE [None]
